FAERS Safety Report 8418544-4 (Version None)
Quarter: 2012Q2

REPORT INFORMATION
  Report Type: 
  Country: None (occurrence: None)
  Receive Date: 20120607
  Receipt Date: 20120524
  Transmission Date: 20120825
  Serious: Yes (Death, Hospitalization)
  Sender: FDA-Public Use
  Company Number: DE-CELGENEUS-062-21880-11011219

PATIENT
  Age: 77 Year
  Sex: Male

DRUGS (18)
  1. HYDROCHLOROTHIAZIDE [Concomitant]
     Dosage: 12.5 MILLIGRAM
     Route: 048
  2. SPIRONOLACTONE [Concomitant]
     Dosage: 50
     Route: 065
  3. TAMSULOSIN HCL [Concomitant]
     Dosage: .4 MILLIGRAM
     Route: 048
  4. LEVOTHYROXINE SODIUM [Concomitant]
     Indication: HYPOTHYROIDISM
     Dosage: 100 MICROGRAM
     Route: 048
  5. FUROSEMIDE [Concomitant]
     Route: 048
  6. SIMVASTATIN [Concomitant]
     Dosage: 20 MILLIGRAM
     Route: 048
  7. ALLOBETA [Concomitant]
     Dosage: 100 MILLIGRAM
     Route: 048
  8. OMEPRAZOLE [Concomitant]
     Dosage: 20 MILLIGRAM
     Route: 065
  9. TORSEMIDE [Concomitant]
     Dosage: 10
     Route: 048
  10. SYMBICORT [Concomitant]
     Dosage: 230/9A?G
     Route: 055
  11. REPAGLINIDE [Concomitant]
     Indication: DIABETES MELLITUS
     Dosage: .5 MILLIGRAM
     Route: 048
  12. REVLIMID [Suspect]
     Indication: MYELODYSPLASTIC SYNDROME
     Dosage: 25 MILLIGRAM
     Route: 048
     Dates: start: 20110108, end: 20110112
  13. CARVEDILOL [Concomitant]
     Dosage: 12.5 MILLIGRAM
     Route: 048
  14. AZACITIDINE [Suspect]
     Indication: MYELODYSPLASTIC SYNDROME
     Dosage: 75 MILLIGRAM/SQ. METER
     Route: 058
     Dates: start: 20110103, end: 20110107
  15. IRBESARTAN [Concomitant]
     Dosage: 150 MILLIGRAM
     Route: 065
  16. VOLTAREN [Concomitant]
     Dosage: 25 MILLIGRAM
     Route: 048
  17. CLARITHROMYCIN [Concomitant]
     Dosage: 200
     Route: 048
  18. ATROVENT [Concomitant]
     Route: 055

REACTIONS (1)
  - PNEUMONIA [None]
